FAERS Safety Report 4954059-3 (Version None)
Quarter: 2006Q1

REPORT INFORMATION
  Report Type: 
  Country: None (occurrence: None)
  Receive Date: 20060321
  Receipt Date: 20060315
  Transmission Date: 20060701
  Serious: Yes (Life-Threatening, Hospitalization)
  Sender: FDA-Public Use
  Company Number: 2006-137371-NL

PATIENT
  Age: 84 Year
  Sex: Male

DRUGS (1)
  1. MIRTAZAPINE [Suspect]
     Indication: TENSION
     Dosage: DF
     Route: 048
     Dates: start: 20050530, end: 20050816

REACTIONS (24)
  - ABDOMINAL PAIN [None]
  - ABNORMAL DREAMS [None]
  - ANGINA PECTORIS [None]
  - ARTHRALGIA [None]
  - BLADDER DISORDER [None]
  - CONFUSIONAL STATE [None]
  - FLATULENCE [None]
  - HALLUCINATION [None]
  - HYPERHIDROSIS [None]
  - IMMUNE SYSTEM DISORDER [None]
  - INFLUENZA [None]
  - LETHARGY [None]
  - LEUKOCYTOCLASTIC VASCULITIS [None]
  - MALAISE [None]
  - MUSCLE SPASMS [None]
  - NAUSEA [None]
  - OEDEMA PERIPHERAL [None]
  - POLLAKIURIA [None]
  - POLYMYALGIA [None]
  - RENAL FAILURE [None]
  - SYNOVITIS [None]
  - TENSION HEADACHE [None]
  - VIRAL INFECTION [None]
  - WEIGHT DECREASED [None]
